FAERS Safety Report 24080320 (Version 2)
Quarter: 2024Q3

REPORT INFORMATION
  Report Type: Spontaneous
  Country: US (occurrence: US)
  Receive Date: 20240711
  Receipt Date: 20240904
  Transmission Date: 20241016
  Serious: No
  Sender: PFIZER
  Company Number: US-PFIZER INC-PV202400088825

PATIENT
  Age: 52 Year
  Sex: Female

DRUGS (1)
  1. DEPO-ESTRADIOL [Suspect]
     Active Substance: ESTRADIOL CYPIONATE
     Indication: Hormone replacement therapy
     Dosage: 0.25 MG, CYCLIC(SO STARTING WITH ONCE EVERY 4 WEEKS)
     Dates: start: 20240610

REACTIONS (2)
  - Weight increased [Unknown]
  - Product prescribing issue [Unknown]
